FAERS Safety Report 9698004 (Version 3)
Quarter: 2014Q1

REPORT INFORMATION
  Report Type: Report from Study
  Country: KR (occurrence: KR)
  Receive Date: 20131120
  Receipt Date: 20140114
  Transmission Date: 20141002
  Serious: Yes (Death)
  Sender: FDA-Public Use
  Company Number: KR-CELGENEUS-286-50794-13111301

PATIENT
  Age: 84 Year
  Sex: Female
  Weight: 54 kg

DRUGS (7)
  1. VIDAZA [Suspect]
     Indication: MYELODYSPLASTIC SYNDROME
     Dosage: 110 MILLIGRAM
     Route: 058
     Dates: start: 20131001, end: 20131007
  2. FLUIMUCIL [Concomitant]
     Indication: CHRONIC OBSTRUCTIVE PULMONARY DISEASE
     Dosage: 1200 MILLIGRAM
     Route: 048
     Dates: start: 20131002, end: 20131010
  3. RAMSET [Concomitant]
     Indication: NAUSEA
     Dosage: 1 TABLET
     Route: 048
     Dates: start: 20131002, end: 20131002
  4. NOXAFIL [Concomitant]
     Indication: INFECTION PROPHYLAXIS
     Dosage: 1 OTHER
     Route: 048
     Dates: start: 20131001, end: 20131011
  5. MEGACE [Concomitant]
     Indication: PROPHYLAXIS
     Dosage: 1 OTHER
     Route: 048
     Dates: start: 20131010, end: 20131011
  6. NEXIUM [Concomitant]
     Indication: PROPHYLAXIS OF NAUSEA AND VOMITING
     Dosage: 1 TABLET
     Route: 048
     Dates: start: 20131001, end: 20131011
  7. SYNTHYROID [Concomitant]
     Indication: PRODUCT USED FOR UNKNOWN INDICATION
     Route: 065

REACTIONS (1)
  - Death [Fatal]
